FAERS Safety Report 10070180 (Version 2)
Quarter: 2014Q2

REPORT INFORMATION
  Report Type: Spontaneous
  Country: GB (occurrence: None)
  Receive Date: 20140408
  Receipt Date: 20140418
  Transmission Date: 20141212
  Serious: Yes (Hospitalization)
  Sender: FDA-Public Use
  Company Number: GB-JNJFOC-20140307766

PATIENT
  Age: 28 Month
  Sex: Male
  Weight: 16 kg

DRUGS (22)
  1. DACOGEN [Suspect]
     Indication: ACUTE MYELOID LEUKAEMIA
     Route: 042
     Dates: start: 20140127, end: 20140131
  2. CYTARABINE [Suspect]
     Indication: ACUTE MYELOID LEUKAEMIA
     Route: 042
     Dates: start: 20140203, end: 20140207
  3. GENTAMICIN [Concomitant]
  4. CEFTAZIDIME [Concomitant]
  5. TEICOPLANIN [Concomitant]
  6. TAZOCIN [Concomitant]
  7. PARACETAMOL [Concomitant]
  8. ONDANSETRON [Concomitant]
  9. DEXAMETHASONE (DEXAMETHASONE) [Concomitant]
  10. AMBISOME (AMPHOTERICIN B) INJECTION [Concomitant]
  11. CHLORPHENIRAMINE [Concomitant]
  12. ALLOPURINOL (ALLOPURINOL) [Concomitant]
  13. PREDNISOLONE [Concomitant]
  14. BETAMETHASONE [Concomitant]
  15. VANCOMYCIN (VANCOMYCIN) [Concomitant]
  16. CIPROFLOXACIN (CIPROFLOXACIN) [Concomitant]
  17. MEROPENEM (MEROPENEM) [Concomitant]
  18. FLUCLOXACILLIN [Concomitant]
  19. AMILORIDE [Concomitant]
  20. POTASSIUM CHLORIDE [Concomitant]
  21. CHLORPHENIRAMINE [Concomitant]
  22. CYCLOPHOSPHAMINE [Concomitant]

REACTIONS (8)
  - Febrile neutropenia [None]
  - Toxicity to various agents [None]
  - Skin hyperpigmentation [None]
  - Skin exfoliation [None]
  - Pyrexia [None]
  - Dry eye [None]
  - Hypokalaemia [None]
  - Nausea [None]
